FAERS Safety Report 7060886-1 (Version None)
Quarter: 2010Q4

REPORT INFORMATION
  Report Type: 
  Country: None (occurrence: None)
  Receive Date: 20101025
  Receipt Date: 20101018
  Transmission Date: 20110411
  Serious: Yes (Hospitalization, Disabling, Congenital Anomaly, Other)
  Sender: FDA-Public Use
  Company Number: US-MERCK-1005USA01061

PATIENT
  Age: 69 Year
  Sex: Female
  Weight: 65 kg

DRUGS (16)
  1. FOSAMAX [Suspect]
     Indication: OSTEOPENIA
     Route: 048
     Dates: start: 19971101, end: 20070101
  2. FOSAMAX [Suspect]
     Route: 048
  3. FOSAMAX [Suspect]
     Route: 048
     Dates: start: 20020201
  4. FOSAMAX [Suspect]
     Indication: OSTEOPOROSIS
     Route: 048
     Dates: start: 19971101, end: 20070101
  5. FOSAMAX [Suspect]
     Route: 048
  6. FOSAMAX [Suspect]
     Route: 048
     Dates: start: 20020201
  7. FOSAMAX PLUS D [Suspect]
     Indication: OSTEOPENIA
     Route: 048
     Dates: start: 20071026, end: 20081118
  8. FOSAMAX PLUS D [Suspect]
     Indication: OSTEOPOROSIS
     Route: 048
     Dates: start: 20071026, end: 20081118
  9. LIPITOR [Concomitant]
     Route: 065
     Dates: start: 19960101
  10. CLARITIN [Concomitant]
     Route: 065
     Dates: start: 19990101
  11. NORVASC [Concomitant]
     Route: 065
     Dates: start: 19960101, end: 20080101
  12. PLENDIL [Concomitant]
     Route: 065
     Dates: start: 19960101, end: 20080101
  13. ALBUTEROL [Concomitant]
     Route: 065
     Dates: start: 19890101
  14. SEREVENT [Concomitant]
     Route: 065
     Dates: start: 19890101
  15. AZMACORT [Concomitant]
     Route: 065
     Dates: start: 19890101
  16. ACTONEL [Concomitant]
     Route: 065
     Dates: start: 20000601, end: 20010101

REACTIONS (89)
  - ABDOMINAL PAIN [None]
  - ACTINIC KERATOSIS [None]
  - ADVERSE EVENT [None]
  - ALCOHOL PROBLEM [None]
  - ANAESTHETIC COMPLICATION [None]
  - ANXIETY [None]
  - ASTHMA [None]
  - ATROPHIC VULVOVAGINITIS [None]
  - BACK PAIN [None]
  - BACTERIAL INFECTION [None]
  - BLADDER DISORDER [None]
  - BREAST PAIN [None]
  - BRONCHITIS [None]
  - BURSITIS [None]
  - CATARACT [None]
  - CEREBROVASCULAR ACCIDENT [None]
  - CHEST PAIN [None]
  - CHEST X-RAY ABNORMAL [None]
  - CHRONIC OBSTRUCTIVE PULMONARY DISEASE [None]
  - CONJUNCTIVITIS [None]
  - CONSTIPATION [None]
  - CONTUSION [None]
  - CONVULSION [None]
  - CYSTITIS INTERSTITIAL [None]
  - DEAFNESS NEUROSENSORY [None]
  - DEPRESSION [None]
  - DIARRHOEA [None]
  - DIVERTICULITIS [None]
  - DIZZINESS [None]
  - DRUG ABUSE [None]
  - DRUG HYPERSENSITIVITY [None]
  - DUPUYTREN'S CONTRACTURE [None]
  - DYSPEPSIA [None]
  - DYSURIA [None]
  - ELECTROCARDIOGRAM ST-T SEGMENT ABNORMAL [None]
  - ENURESIS [None]
  - ESSENTIAL HYPERTENSION [None]
  - EYE DISORDER [None]
  - FACTOR XI DEFICIENCY [None]
  - FALL [None]
  - FATIGUE [None]
  - FEMUR FRACTURE [None]
  - FIBROCYSTIC BREAST DISEASE [None]
  - FRACTURE DELAYED UNION [None]
  - FRACTURE NONUNION [None]
  - GLUCOSE TOLERANCE IMPAIRED [None]
  - HAEMATOCRIT DECREASED [None]
  - HAEMOGLOBIN DECREASED [None]
  - HAEMORRHAGE [None]
  - HAND FRACTURE [None]
  - INJURY ASSOCIATED WITH DEVICE [None]
  - INSOMNIA [None]
  - INTERVERTEBRAL DISC DEGENERATION [None]
  - LEFT VENTRICULAR DYSFUNCTION [None]
  - LUMBAR RADICULOPATHY [None]
  - MALAISE [None]
  - MUSCLE HAEMORRHAGE [None]
  - MUSCLE RUPTURE [None]
  - MUSCLE SPASMS [None]
  - MUSCLE STRAIN [None]
  - NEUROPATHY PERIPHERAL [None]
  - NOCTURIA [None]
  - ORTHOSTATIC HYPOTENSION [None]
  - OSTEOARTHRITIS [None]
  - OTITIS EXTERNA [None]
  - OTITIS MEDIA ACUTE [None]
  - PAIN [None]
  - PAIN IN EXTREMITY [None]
  - PALPITATIONS [None]
  - PERONEAL NERVE PALSY [None]
  - PNEUMONIA [None]
  - PNEUMONIA ASPIRATION [None]
  - POLYURIA [None]
  - POST PROCEDURAL COMPLICATION [None]
  - PRESYNCOPE [None]
  - PURPURA [None]
  - RADICULITIS LUMBOSACRAL [None]
  - RENAL FAILURE CHRONIC [None]
  - RESTLESS LEGS SYNDROME [None]
  - ROSACEA [None]
  - SCOLIOSIS [None]
  - SEBORRHOEIC KERATOSIS [None]
  - SINUS TACHYCARDIA [None]
  - SPINAL DISORDER [None]
  - TENDON RUPTURE [None]
  - TINNITUS [None]
  - TRANSFUSION REACTION [None]
  - TYPE 2 DIABETES MELLITUS [None]
  - URINARY TRACT INFECTION [None]
